FAERS Safety Report 26167328 (Version 1)
Quarter: 2025Q4

REPORT INFORMATION
  Report Type: Spontaneous
  Country: US (occurrence: US)
  Receive Date: 20251217
  Receipt Date: 20251217
  Transmission Date: 20260118
  Serious: No
  Sender: TEVA
  Company Number: US-TEVA-VS-3399477

PATIENT
  Age: 77 Year
  Sex: Female

DRUGS (1)
  1. TRAZODONE HYDROCHLORIDE [Suspect]
     Active Substance: TRAZODONE HYDROCHLORIDE
     Indication: Sleep disorder
     Route: 048

REACTIONS (3)
  - Swelling [Unknown]
  - Illness [Unknown]
  - Product use in unapproved indication [Unknown]
